FAERS Safety Report 10235411 (Version 1)
Quarter: 2014Q2

REPORT INFORMATION
  Report Type: Spontaneous
  Country: CN (occurrence: CN)
  Receive Date: 20140613
  Receipt Date: 20140613
  Transmission Date: 20141212
  Serious: Yes (Other)
  Sender: FDA-Public Use
  Company Number: CN-PFIZER INC-2014160197

PATIENT
  Age: 56 Year
  Sex: Female
  Weight: 80 kg

DRUGS (3)
  1. PHARMORUBICIN [Suspect]
     Indication: BREAST CANCER
     Dosage: 160 MG, 1X/DAY
     Route: 041
     Dates: start: 20130923, end: 20130923
  2. FLUOROURACIL [Suspect]
     Indication: BREAST CANCER
     Dosage: 950 MG, 1X/DAY
     Route: 041
     Dates: start: 20130923, end: 20130923
  3. CYCLOPHOSPHAMIDE [Suspect]
     Indication: BREAST CANCER
     Dosage: 950 MG, 1X/DAY
     Route: 041
     Dates: start: 20130923, end: 20130923

REACTIONS (1)
  - Hepatocellular injury [Recovering/Resolving]
